FAERS Safety Report 8257359-7 (Version None)
Quarter: 2012Q1

REPORT INFORMATION
  Report Type: 
  Country: None (occurrence: None)
  Receive Date: 20120330
  Receipt Date: 20120330
  Transmission Date: 20120608
  Serious: Yes (Disabling)
  Sender: FDA-Public Use
  Company Number: None

PATIENT
  Age: 50 Year
  Sex: Male
  Weight: 74.8435 kg

DRUGS (1)
  1. CRESTOR [Suspect]
     Indication: HIGH DENSITY LIPOPROTEIN DECREASED
     Dates: start: 20120203, end: 20120301

REACTIONS (4)
  - LETHARGY [None]
  - JOINT SWELLING [None]
  - BLOOD BILIRUBIN INCREASED [None]
  - OEDEMA PERIPHERAL [None]
